FAERS Safety Report 15124443 (Version 1)
Quarter: 2018Q3

REPORT INFORMATION
  Report Type: Spontaneous
  Country: US (occurrence: US)
  Receive Date: 20180710
  Receipt Date: 20180710
  Transmission Date: 20181010
  Serious: No
  Sender: FDA-Public Use
  Company Number: US-GLENMARK PHARMACEUTICALS-2017GMK030333

PATIENT

DRUGS (4)
  1. MUPIROCIN. [Suspect]
     Active Substance: MUPIROCIN
     Indication: FUNGAL INFECTION
  2. MUPIROCIN. [Suspect]
     Active Substance: MUPIROCIN
     Indication: TINEA CAPITIS
     Dosage: UNK UNK, TID
     Route: 065
     Dates: start: 20171218
  3. GRISEOFULV [Concomitant]
     Indication: TINEA INFECTION
     Dosage: UNK,  1 TIME PER DAY
     Route: 048
  4. BACTRIM [Concomitant]
     Active Substance: SULFAMETHOXAZOLE\TRIMETHOPRIM
     Indication: TINEA INFECTION
     Dosage: UNK, 1 TIME PER DAY
     Route: 048

REACTIONS (2)
  - No adverse event [Unknown]
  - Product use in unapproved indication [Unknown]
